FAERS Safety Report 15659820 (Version 3)
Quarter: 2018Q4

REPORT INFORMATION
  Report Type: Spontaneous
  Country: FR (occurrence: FR)
  Receive Date: 20181127
  Receipt Date: 20181210
  Transmission Date: 20190205
  Serious: Yes (Hospitalization)
  Sender: FDA-Public Use
  Company Number: FR-AUROBINDO-AUR-APL-2018-056616

PATIENT
  Age: 17 Year
  Sex: Male
  Weight: 82 kg

DRUGS (19)
  1. CEFPODOXIME [Suspect]
     Active Substance: CEFPODOXIME
     Indication: PRODUCT USED FOR UNKNOWN INDICATION
     Dosage: 2000 MILLIGRAM, IN TOTAL
     Route: 048
     Dates: start: 20180701, end: 20180701
  2. CEFPODOXIME [Suspect]
     Active Substance: CEFPODOXIME
     Dosage: 100 MILLIGRAM  IN TOTAL
     Route: 048
     Dates: start: 20180701, end: 20180701
  3. ARESTAL [Suspect]
     Active Substance: LOPERAMIDE OXIDE
     Dosage: 1 MILLIGRAM TOTAL (30 MG, TOTAL)
     Route: 048
     Dates: start: 20180701, end: 20180701
  4. INORIAL [Suspect]
     Active Substance: BILASTINE
     Dosage: 20 MILLIGRAM, TOTAL (120 MG, TOTAL)
     Route: 048
     Dates: start: 20180701, end: 20180701
  5. ESCITALOPRAM [Suspect]
     Active Substance: ESCITALOPRAM OXALATE
     Dosage: 10 MILLIGRAM, ONCE A DAY (OVERDOSE: 140 MG, 1 DAY)
     Route: 048
     Dates: start: 20180701, end: 20180701
  6. TRIMEBUTINE [Suspect]
     Active Substance: TRIMEBUTINE
     Dosage: 200 MILLIGRAM  IN TOTAL (14000 MG, TOTAL)
     Route: 048
     Dates: start: 20180701, end: 20180701
  7. AUGMENTIN [Suspect]
     Active Substance: AMOXICILLIN\CLAVULANATE POTASSIUM
     Indication: PRODUCT USED FOR UNKNOWN INDICATION
     Dosage: 6 GRAM, TOTAL
     Route: 048
     Dates: start: 20180701, end: 20180701
  8. PREDNISOLONE. [Suspect]
     Active Substance: PREDNISOLONE
     Indication: PRODUCT USED FOR UNKNOWN INDICATION
     Dosage: 200 MILLIGRAM, IN TOTAL
     Route: 048
     Dates: start: 20180701, end: 20180701
  9. INORIAL [Suspect]
     Active Substance: BILASTINE
     Indication: PRODUCT USED FOR UNKNOWN INDICATION
     Dosage: 120 MILLIGRAM, TOTAL
     Route: 048
     Dates: start: 20180701, end: 20180701
  10. ESCITALOPRAM [Suspect]
     Active Substance: ESCITALOPRAM OXALATE
     Indication: PRODUCT USED FOR UNKNOWN INDICATION
     Dosage: 140 MILLIGRAM, ONCE A DAY
     Route: 048
     Dates: start: 20180701, end: 20180701
  11. AZITHROMYCIN ANHYDROUS. [Suspect]
     Active Substance: AZITHROMYCIN ANHYDROUS
     Indication: PRODUCT USED FOR UNKNOWN INDICATION
     Dosage: 1500 MILLIGRAM, TOTAL
     Route: 048
     Dates: start: 20180701, end: 20180701
  12. SERESTA [Suspect]
     Active Substance: OXAZEPAM
     Dosage: 10 MILLIGRAM TOTAL (310 MG, TOTAL)
     Route: 048
     Dates: start: 20180701, end: 20180701
  13. ARESTAL [Suspect]
     Active Substance: LOPERAMIDE OXIDE
     Indication: PRODUCT USED FOR UNKNOWN INDICATION
     Dosage: 30 MILLIGRAM, TOTAL
     Route: 048
     Dates: start: 20180701, end: 20180701
  14. TRIMEBUTINE [Suspect]
     Active Substance: TRIMEBUTINE
     Indication: PRODUCT USED FOR UNKNOWN INDICATION
     Dosage: 14000 MILLIGRAM, IN TOTAL
     Route: 048
     Dates: start: 20180701, end: 20180701
  15. AZITHROMYCIN ANHYDROUS. [Suspect]
     Active Substance: AZITHROMYCIN ANHYDROUS
     Dosage: 250 MILLIGRAM TOTAL (1500 MG, TOTAL)
     Route: 048
     Dates: start: 20180701, end: 20180701
  16. PREDNISOLONE. [Suspect]
     Active Substance: PREDNISOLONE
     Dosage: 20 MILLIGRAM IN TOTAL (200 MG, TOTAL)
     Route: 048
     Dates: start: 20180701, end: 20180701
  17. HEPATOUM [Suspect]
     Active Substance: DIETARY SUPPLEMENT\HERBALS
     Indication: PRODUCT USED FOR UNKNOWN INDICATION
     Dosage: UNK
     Route: 048
     Dates: start: 20180701, end: 20180701
  18. SERESTA [Suspect]
     Active Substance: OXAZEPAM
     Indication: PRODUCT USED FOR UNKNOWN INDICATION
     Dosage: 310 MILLIGRAM, TOTAL
     Route: 048
     Dates: start: 20180701, end: 20180701
  19. PARACETAMOL [Suspect]
     Active Substance: ACETAMINOPHEN
     Indication: PRODUCT USED FOR UNKNOWN INDICATION
     Dosage: 79 GRAM, IN TOTAL
     Route: 048
     Dates: start: 20180701, end: 20180701

REACTIONS (7)
  - Malaise [Recovered/Resolved]
  - Toxicity to various agents [Recovered/Resolved]
  - Mydriasis [Recovered/Resolved]
  - Somnolence [Recovered/Resolved]
  - Intentional overdose [Unknown]
  - Product use issue [Unknown]
  - Vomiting [Recovered/Resolved]

NARRATIVE: CASE EVENT DATE: 20180701
